FAERS Safety Report 17196557 (Version 3)
Quarter: 2020Q2

REPORT INFORMATION
  Report Type: Spontaneous
  Country: US (occurrence: US)
  Receive Date: 20191224
  Receipt Date: 20200618
  Transmission Date: 20200713
  Serious: No
  Sender: FDA-Public Use
  Company Number: US-VERTEX PHARMACEUTICALS-2019-013172

PATIENT
  Age: 41 Year
  Sex: Male
  Weight: 82 kg

DRUGS (1)
  1. TRIKAFTA [Suspect]
     Active Substance: ELEXACAFTOR\IVACAFTOR\TEZACAFTOR
     Indication: CYSTIC FIBROSIS
     Dosage: (100MG ELEXACAFTOR/ 50MG TEZACAFTOR/ 75MG IVACAFTOR AND 150MG IVACAFTOR),  BID
     Route: 048
     Dates: start: 20191208

REACTIONS (5)
  - Nephrolithiasis [Unknown]
  - Sinusitis [Recovered/Resolved]
  - Productive cough [Recovered/Resolved]
  - Headache [Recovered/Resolved]
  - Back pain [Unknown]

NARRATIVE: CASE EVENT DATE: 201912
